FAERS Safety Report 6398747-3 (Version None)
Quarter: 2009Q4

REPORT INFORMATION
  Report Type: 
  Country: None (occurrence: None)
  Receive Date: 20091013
  Receipt Date: 20091007
  Transmission Date: 20100525
  Serious: Yes (Death, Other)
  Sender: FDA-Public Use
  Company Number: PHHY2009CA42822

PATIENT
  Sex: Male

DRUGS (9)
  1. ALISKIREN ALI+ [Suspect]
     Indication: HYPERTENSION
     Dosage: 300 MG
     Route: 048
     Dates: start: 20090722, end: 20090917
  2. ALISKIREN ALI+ [Suspect]
     Indication: MICROALBUMINURIA
  3. TIAZAC [Concomitant]
  4. CRESTOR [Concomitant]
  5. FUROSEMIDE [Concomitant]
     Dosage: 40 MG, BID
  6. DIAMICRON [Concomitant]
     Dosage: 30 MG, UNK
     Route: 042
  7. ALLOPURINOL [Concomitant]
     Dosage: 300 MG ONCE DAILY
  8. WARFARIN SODIUM [Concomitant]
     Dosage: 9 MG DAILY
  9. DIOVAN [Concomitant]
     Dosage: 320 MG, UNK

REACTIONS (3)
  - FALL [None]
  - HIP FRACTURE [None]
  - POST PROCEDURAL COMPLICATION [None]
